FAERS Safety Report 5935191-4 (Version None)
Quarter: 2008Q4

REPORT INFORMATION
  Report Type: 
  Country: None (occurrence: None)
  Receive Date: 20081028
  Receipt Date: 20081016
  Transmission Date: 20090506
  Serious: Yes (Disabling)
  Sender: FDA-Public Use
  Company Number: 2008AL011382

PATIENT
  Sex: Male

DRUGS (2)
  1. RANITIDINE [Suspect]
     Indication: PEPTIC ULCER
     Dosage: 300 MG UNK PO
     Route: 048
     Dates: start: 19960101, end: 20080701
  2. ESOMEPRAZOLE MAGNESIUM [Concomitant]

REACTIONS (2)
  - DYSTONIA [None]
  - TARDIVE DYSKINESIA [None]
